FAERS Safety Report 11029619 (Version 3)
Quarter: 2015Q4

REPORT INFORMATION
  Report Type: Spontaneous
  Country: JP (occurrence: JP)
  Receive Date: 20150415
  Receipt Date: 20151002
  Transmission Date: 20160304
  Serious: Yes (Hospitalization, Other)
  Sender: FDA-Public Use
  Company Number: JP-ROCHE-1563894

PATIENT
  Age: 56 Year
  Sex: Male
  Weight: 59 kg

DRUGS (56)
  1. DOXORUBICIN HYDROCHLORIDE. [Suspect]
     Active Substance: DOXORUBICIN HYDROCHLORIDE
     Indication: ADULT T-CELL LYMPHOMA/LEUKAEMIA
     Route: 051
     Dates: start: 20150129, end: 20150129
  2. DOXORUBICIN HYDROCHLORIDE. [Suspect]
     Active Substance: DOXORUBICIN HYDROCHLORIDE
     Route: 051
     Dates: start: 20150217, end: 20150217
  3. CYCLOPHOSPHAMIDE. [Suspect]
     Active Substance: CYCLOPHOSPHAMIDE
     Route: 065
     Dates: start: 20150217, end: 20150217
  4. CARBOPLATIN. [Suspect]
     Active Substance: CARBOPLATIN
     Indication: ADULT T-CELL LYMPHOMA/LEUKAEMIA
     Route: 065
     Dates: start: 20150129, end: 20150129
  5. CYLOCIDE [Concomitant]
     Active Substance: CYTARABINE
     Route: 051
  6. DOXORUBICIN HYDROCHLORIDE. [Suspect]
     Active Substance: DOXORUBICIN HYDROCHLORIDE
     Route: 051
     Dates: start: 20150318, end: 20150320
  7. PREDNISOLONE. [Suspect]
     Active Substance: PREDNISOLONE
     Indication: ADULT T-CELL LYMPHOMA/LEUKAEMIA
     Route: 048
     Dates: start: 20150129, end: 20150129
  8. PREDNISOLONE. [Suspect]
     Active Substance: PREDNISOLONE
     Route: 048
     Dates: end: 20150331
  9. CARBOPLATIN. [Suspect]
     Active Substance: CARBOPLATIN
     Route: 065
     Dates: start: 20150318, end: 20150320
  10. ASPARA POTASSIUM [Concomitant]
     Active Substance: POTASSIUM ASPARTATE
     Route: 048
  11. PRE DOPA [Concomitant]
     Route: 065
  12. EMEND [Concomitant]
     Active Substance: APREPITANT
     Route: 048
  13. SODIUM BICARBONATE. [Concomitant]
     Active Substance: SODIUM BICARBONATE
     Route: 048
  14. DENOSINE [Suspect]
     Active Substance: GANCICLOVIR
     Route: 041
     Dates: start: 20150224, end: 20150313
  15. FILGRASTIM [Suspect]
     Active Substance: FILGRASTIM
     Indication: NEUTROPENIA
     Route: 041
     Dates: start: 20150126, end: 20150126
  16. FILGRASTIM [Suspect]
     Active Substance: FILGRASTIM
     Route: 041
     Dates: start: 20150130, end: 20150208
  17. RANIMUSTINE [Suspect]
     Active Substance: RANIMUSTINE
     Route: 051
     Dates: start: 20150318, end: 20150320
  18. VINCRISTINE SULFATE. [Suspect]
     Active Substance: VINCRISTINE SULFATE
     Route: 065
     Dates: start: 20150318, end: 20150320
  19. CYCLOPHOSPHAMIDE. [Suspect]
     Active Substance: CYCLOPHOSPHAMIDE
     Route: 065
     Dates: start: 20150318, end: 20150320
  20. RASURITEK [Concomitant]
     Active Substance: RASBURICASE
     Route: 065
  21. FUROSEMIDE. [Concomitant]
     Active Substance: FUROSEMIDE
     Route: 065
  22. FILGRASTIM [Suspect]
     Active Substance: FILGRASTIM
     Route: 041
     Dates: start: 20150211, end: 20150211
  23. CALCICOL [Concomitant]
     Active Substance: CALCIUM GLUCONATE
     Route: 065
  24. DENOSINE [Suspect]
     Active Substance: GANCICLOVIR
     Indication: CYTOMEGALOVIRUS CHORIORETINITIS
     Route: 041
     Dates: start: 20150218, end: 20150224
  25. FILGRASTIM [Suspect]
     Active Substance: FILGRASTIM
     Route: 041
     Dates: start: 20150308, end: 20150308
  26. FILGRASTIM [Suspect]
     Active Substance: FILGRASTIM
     Route: 041
     Dates: start: 20150310, end: 20150310
  27. CYCLOPHOSPHAMIDE. [Suspect]
     Active Substance: CYCLOPHOSPHAMIDE
     Indication: ADULT T-CELL LYMPHOMA/LEUKAEMIA
     Route: 065
     Dates: start: 20150129, end: 20150129
  28. FILGRASTIM [Suspect]
     Active Substance: FILGRASTIM
     Route: 041
     Dates: start: 20150314, end: 20150314
  29. ETOPOSIDE. [Suspect]
     Active Substance: ETOPOSIDE
     Route: 065
     Dates: start: 20150217, end: 20150217
  30. ETOPOSIDE. [Suspect]
     Active Substance: ETOPOSIDE
     Route: 065
     Dates: start: 20150318, end: 20150320
  31. CARBOPLATIN. [Suspect]
     Active Substance: CARBOPLATIN
     Route: 065
     Dates: start: 20150217, end: 20150217
  32. ALOXI [Concomitant]
     Active Substance: PALONOSETRON HYDROCHLORIDE
     Route: 051
  33. FILGRASTIM [Suspect]
     Active Substance: FILGRASTIM
     Route: 041
     Dates: start: 20150128, end: 20150128
  34. FILGRASTIM [Suspect]
     Active Substance: FILGRASTIM
     Route: 041
     Dates: start: 20150218, end: 20150220
  35. FILGRASTIM [Suspect]
     Active Substance: FILGRASTIM
     Route: 041
     Dates: start: 20150312, end: 20150312
  36. RANIMUSTINE [Suspect]
     Active Substance: RANIMUSTINE
     Indication: ADULT T-CELL LYMPHOMA/LEUKAEMIA
     Route: 051
     Dates: start: 20150129, end: 20150129
  37. CASPOFUNGIN ACETATE [Suspect]
     Active Substance: CASPOFUNGIN ACETATE
     Indication: ASPERGILLOMA
     Route: 041
     Dates: start: 20141009, end: 20141104
  38. ELCATONIN [Concomitant]
     Active Substance: ELCATONIN
     Route: 051
  39. NEUTROGIN [Concomitant]
     Active Substance: LENOGRASTIM
     Route: 065
  40. PRIMPERAN [Concomitant]
     Active Substance: METOCLOPRAMIDE HYDROCHLORIDE
     Route: 051
  41. FILGRASTIM [Suspect]
     Active Substance: FILGRASTIM
     Route: 041
     Dates: start: 20150223, end: 20150301
  42. FILGRASTIM [Suspect]
     Active Substance: FILGRASTIM
     Route: 041
     Dates: start: 20150304, end: 20150306
  43. FILGRASTIM [Suspect]
     Active Substance: FILGRASTIM
     Route: 041
     Dates: start: 20150316, end: 20150316
  44. RANIMUSTINE [Suspect]
     Active Substance: RANIMUSTINE
     Route: 051
     Dates: start: 20150217, end: 20150217
  45. RANIMUSTINE [Suspect]
     Active Substance: RANIMUSTINE
     Route: 051
     Dates: end: 20150331
  46. DOXORUBICIN HYDROCHLORIDE. [Suspect]
     Active Substance: DOXORUBICIN HYDROCHLORIDE
     Route: 051
     Dates: end: 20150331
  47. PREDNISOLONE. [Suspect]
     Active Substance: PREDNISOLONE
     Route: 048
     Dates: start: 20150217, end: 20150217
  48. PREDNISOLONE. [Suspect]
     Active Substance: PREDNISOLONE
     Route: 048
     Dates: start: 20150318, end: 20150320
  49. VINCRISTINE SULFATE. [Suspect]
     Active Substance: VINCRISTINE SULFATE
     Indication: ADULT T-CELL LYMPHOMA/LEUKAEMIA
     Route: 065
     Dates: start: 20150129, end: 20150129
  50. VINCRISTINE SULFATE. [Suspect]
     Active Substance: VINCRISTINE SULFATE
     Route: 065
     Dates: start: 20150217, end: 20150217
  51. VINDESINE SULFATE [Suspect]
     Active Substance: VINDESINE SULFATE
     Indication: LEUKAEMIA
     Route: 065
     Dates: start: 20150129, end: 20150129
  52. VINDESINE SULFATE [Suspect]
     Active Substance: VINDESINE SULFATE
     Route: 065
     Dates: start: 20150217, end: 20150217
  53. VINDESINE SULFATE [Suspect]
     Active Substance: VINDESINE SULFATE
     Route: 065
     Dates: start: 20150318, end: 20150320
  54. ETOPOSIDE. [Suspect]
     Active Substance: ETOPOSIDE
     Indication: ADULT T-CELL LYMPHOMA/LEUKAEMIA
     Route: 065
     Dates: start: 20150129, end: 20150129
  55. FOSCARNET SODIUM. [Suspect]
     Active Substance: FOSCARNET SODIUM
     Indication: CYTOMEGALOVIRUS INFECTION
     Route: 051
     Dates: start: 20150314, end: 20150421
  56. POTASSIUM CHLORIDE. [Concomitant]
     Active Substance: POTASSIUM CHLORIDE
     Route: 051

REACTIONS (2)
  - Drug resistance [Unknown]
  - Bone marrow failure [Recovering/Resolving]

NARRATIVE: CASE EVENT DATE: 20150223
